FAERS Safety Report 11334323 (Version 10)
Quarter: 2019Q4

REPORT INFORMATION
  Report Type: Report from Study
  Country: US (occurrence: US)
  Receive Date: 20150803
  Receipt Date: 20191031
  Transmission Date: 20200122
  Serious: Yes (Other)
  Sender: FDA-Public Use
  Company Number: PHHY2014US159839

PATIENT
  Age: 36 Year
  Sex: Female

DRUGS (2)
  1. GILENYA [Suspect]
     Active Substance: FINGOLIMOD HYDROCHLORIDE
     Indication: MULTIPLE SCLEROSIS
     Dosage: 0.5 MG, QD
     Route: 048
  2. KENALOG [Concomitant]
     Active Substance: TRIAMCINOLONE ACETONIDE
     Indication: DERMATITIS
     Dosage: UNK
     Route: 065
     Dates: start: 20141007

REACTIONS (8)
  - Skin lesion [Recovered/Resolved]
  - Alanine aminotransferase increased [Unknown]
  - Muscular weakness [Not Recovered/Not Resolved]
  - White blood cell count decreased [Unknown]
  - Aspartate aminotransferase increased [Unknown]
  - Gait disturbance [Not Recovered/Not Resolved]
  - Mental impairment [Not Recovered/Not Resolved]
  - Lymphopenia [Recovered/Resolved]

NARRATIVE: CASE EVENT DATE: 20141007
